FAERS Safety Report 12235232 (Version 1)
Quarter: 2016Q2

REPORT INFORMATION
  Report Type: Spontaneous
  Country: US (occurrence: US)
  Receive Date: 20160404
  Receipt Date: 20160404
  Transmission Date: 20160815
  Serious: Yes (Other)
  Sender: FDA-Public Use
  Company Number: US-PFIZER INC-2016171473

PATIENT
  Age: 54 Year
  Sex: Female
  Weight: 125 kg

DRUGS (19)
  1. ALLOPURINOL. [Concomitant]
     Active Substance: ALLOPURINOL
     Indication: GOUT
     Dosage: 100 MG, 1X/DAY
  2. ARTANE [Concomitant]
     Active Substance: TRIHEXYPHENIDYL HYDROCHLORIDE
     Indication: TREMOR
     Dosage: 5 MG, 2X/DAY
  3. SIMVASTATIN. [Concomitant]
     Active Substance: SIMVASTATIN
     Dosage: 20 MG, 1X/DAY, AT BEDTIME
  4. NAVANE [Concomitant]
     Active Substance: THIOTHIXENE
     Indication: PARANOIA
  5. SEROQUEL [Concomitant]
     Active Substance: QUETIAPINE FUMARATE
     Indication: SLEEP DISORDER
     Dosage: 100 MG, 1X/DAY, EVERY EVENING
  6. ATIVAN [Concomitant]
     Active Substance: LORAZEPAM
     Dosage: 1 MG, 1X/DAY, EVERY NIGHT AT BED
  7. BUPROPION. [Concomitant]
     Active Substance: BUPROPION
     Indication: DEPRESSION
     Dosage: 300 MG, 1X/DAY
  8. MELOXICAM. [Concomitant]
     Active Substance: MELOXICAM
     Dosage: 15 MG, 1X/DAY
  9. COLCHICINE. [Concomitant]
     Active Substance: COLCHICINE
     Dosage: 0.6 MG, 2X/DAY
  10. NAVANE [Concomitant]
     Active Substance: THIOTHIXENE
     Indication: HALLUCINATION
     Dosage: 5 MG, 2X/DAY
  11. NAVANE [Concomitant]
     Active Substance: THIOTHIXENE
     Indication: HALLUCINATION, AUDITORY
  12. LAMICTAL [Concomitant]
     Active Substance: LAMOTRIGINE
     Dosage: 150 MG, 1X/DAY
  13. GABAPENTIN. [Suspect]
     Active Substance: GABAPENTIN
     Indication: POLYMYALGIA RHEUMATICA
  14. DEPAKOTE [Concomitant]
     Active Substance: DIVALPROEX SODIUM
     Indication: MENTAL DISORDER
     Dosage: 1500 MG, DAILY, 500 MG TABLET, ONE IN THE MORNING AND TWO AT NIGHT
  15. SYNTHROID [Concomitant]
     Active Substance: LEVOTHYROXINE SODIUM
     Indication: HYPOTHYROIDISM
     Dosage: 112 UG, 1X/DAY
  16. DEXILANT [Concomitant]
     Active Substance: DEXLANSOPRAZOLE
     Indication: GASTROOESOPHAGEAL REFLUX DISEASE
     Dosage: 60 MG, 1X/DAY
  17. GABAPENTIN. [Suspect]
     Active Substance: GABAPENTIN
     Indication: FIBROMYALGIA
     Dosage: 800 MG, 3X/DAY
  18. CLARITIN [Concomitant]
     Active Substance: LORATADINE
     Indication: HYPERSENSITIVITY
     Dosage: 10 MG, 1X/DAY
  19. LASIX [Concomitant]
     Active Substance: FUROSEMIDE
     Indication: FLUID RETENTION
     Dosage: 20 MG, DAILY

REACTIONS (6)
  - Brain injury [Unknown]
  - Cerebral haemorrhage [Unknown]
  - Subdural haematoma [Unknown]
  - Activities of daily living impaired [Unknown]
  - Memory impairment [Unknown]
  - Fall [Unknown]

NARRATIVE: CASE EVENT DATE: 20151025
